FAERS Safety Report 5966602 (Version 2)
Quarter: 2013Q2

REPORT INFORMATION
  Report Type: Spontaneous
  Country: GB (occurrence: GB)
  Receive Date: 20060112
  Receipt Date: 20130403
  Transmission Date: 20140414
  Serious: Yes (Hospitalization)
  Sender: FDA-Public Use
  Company Number: GXKR2006GB00449

PATIENT
  Age: 60 Year
  Sex: Male

DRUGS (3)
  1. METFORMIN [Suspect]
  2. GLIBENCLAMIDE [Suspect]
  3. IBUPROFEN [Suspect]

REACTIONS (7)
  - Lactic acidosis [Recovered/Resolved]
  - Vomiting [Recovered/Resolved]
  - Abdominal pain [Recovered/Resolved]
  - Hypernatraemia [Recovered/Resolved]
  - Apnoea [Recovered/Resolved]
  - Ventricular fibrillation [Recovered/Resolved]
  - Overdose [Recovered/Resolved]
